FAERS Safety Report 6200127-8 (Version None)
Quarter: 2009Q2

REPORT INFORMATION
  Report Type: 
  Country: None (occurrence: None)
  Receive Date: 20090522
  Receipt Date: 20090518
  Transmission Date: 20091009
  Serious: Yes (Other)
  Sender: FDA-Public Use
  Company Number: PHHO2009KR06180

PATIENT
  Age: 77 Year
  Sex: Female
  Weight: 48 kg

DRUGS (1)
  1. ZOLEDRONIC ACID [Suspect]
     Indication: MULTIPLE MYELOMA
     Dosage: 4 MG EVERY 3-4 WEEKS
     Route: 042
     Dates: start: 20090109, end: 20090506

REACTIONS (2)
  - OSTEONECROSIS [None]
  - PAIN IN JAW [None]
